FAERS Safety Report 9630952 (Version 1)
Quarter: 2013Q4

REPORT INFORMATION
  Report Type: Spontaneous
  Country: US (occurrence: None)
  Receive Date: 20131016
  Receipt Date: 20131016
  Transmission Date: 20140711
  Serious: Yes (Other)
  Sender: FDA-Public Use
  Company Number: None

PATIENT
  Age: 80 Year
  Sex: Male
  Weight: 79.38 kg

DRUGS (1)
  1. CIPRO [Suspect]
     Indication: INFECTION
     Route: 048
     Dates: start: 20120426, end: 20120513

REACTIONS (1)
  - Tendon rupture [None]
